FAERS Safety Report 5016947-1 (Version None)
Quarter: 2006Q2

REPORT INFORMATION
  Report Type: 
  Country: None (occurrence: None)
  Receive Date: 20060602
  Receipt Date: 20060519
  Transmission Date: 20061013
  Serious: Yes (Hospitalization)
  Sender: FDA-Public Use
  Company Number: CHWYE639719MAY06

PATIENT
  Age: 65 Year
  Sex: Female

DRUGS (3)
  1. ENBREL [Suspect]
     Indication: DRUG USE FOR UNKNOWN INDICATION
     Route: 058
     Dates: start: 20050712
  2. METHOTREXATE [Suspect]
     Route: 058
  3. PREDNISONE [Concomitant]
     Dosage: 7.5 MG
     Route: 065

REACTIONS (4)
  - EAR PAIN [None]
  - INFLAMMATION [None]
  - PAIN IN JAW [None]
  - TEMPORAL ARTERITIS [None]
